FAERS Safety Report 7108804-1 (Version None)
Quarter: 2010Q4

REPORT INFORMATION
  Report Type: 
  Country: None (occurrence: None)
  Receive Date: 20101115
  Receipt Date: 20101115
  Transmission Date: 20110411
  Serious: No
  Sender: FDA-Public Use
  Company Number: None

PATIENT
  Age: 46 Year
  Sex: Female

DRUGS (1)
  1. GABAPENTIN [Suspect]
     Dosage: 1 CAPSULE QHS PO
     Route: 048
     Dates: start: 20101108, end: 20101110

REACTIONS (1)
  - PARAESTHESIA ORAL [None]
